FAERS Safety Report 17012638 (Version 1)
Quarter: 2019Q4

REPORT INFORMATION
  Report Type: Spontaneous
  Country: US (occurrence: US)
  Receive Date: 20191109
  Receipt Date: 20191109
  Transmission Date: 20200122
  Serious: No
  Sender: FDA-Public Use
  Company Number: US-TEVA-2019-US-1132883

PATIENT
  Sex: Female
  Weight: 81.65 kg

DRUGS (3)
  1. ESOMEPRAZOLE MAGNESIUM. [Suspect]
     Active Substance: ESOMEPRAZOLE MAGNESIUM
     Route: 065
  2. EQUATE OMEPRAZOLE [Suspect]
     Active Substance: OMEPRAZOLE
     Route: 065
  3. ROLAIDS [Suspect]
     Active Substance: CALCIUM CARBONATE\MAGNESIUM HYDROXIDE
     Indication: GASTROOESOPHAGEAL REFLUX DISEASE
     Dosage: UPC 4122054132
     Route: 065

REACTIONS (2)
  - Product substitution issue [Unknown]
  - Drug ineffective [Unknown]
